FAERS Safety Report 10004083 (Version 3)
Quarter: 2014Q2

REPORT INFORMATION
  Report Type: Report from Study
  Country: DE (occurrence: DE)
  Receive Date: 20140312
  Receipt Date: 20140516
  Transmission Date: 20141212
  Serious: Yes (Hospitalization)
  Sender: FDA-Public Use
  Company Number: PHHO2014DE003333

PATIENT
  Sex: 0

DRUGS (6)
  1. TAVEGIL [Suspect]
     Indication: PROPHYLAXIS
     Dosage: 2 MG, UNK
     Dates: end: 20140227
  2. LCL161 [Suspect]
     Indication: BREAST CANCER
     Dosage: 1800 MG, UNK
     Route: 048
     Dates: start: 20140109, end: 20140220
  3. PACLITAXEL [Suspect]
     Indication: BREAST CANCER
     Dosage: 50 MG/M2, UNK
     Dates: start: 20140109, end: 20140220
  4. PREDNISOLONE [Concomitant]
     Indication: PROPHYLAXIS
     Dosage: 8 MG, UNK
     Dates: start: 20140109, end: 20140227
  5. ENOXAPARIN [Concomitant]
     Dosage: 0.7 ML, UNK
     Dates: start: 20140131
  6. RANITIDINE [Concomitant]
     Indication: PROPHYLAXIS
     Dosage: 1 MG, UNK
     Dates: start: 20140109, end: 20140227

REACTIONS (1)
  - Hypotension [Recovered/Resolved]
